FAERS Safety Report 7341881-1 (Version None)
Quarter: 2011Q1

REPORT INFORMATION
  Report Type: 
  Country: None (occurrence: None)
  Receive Date: 20110309
  Receipt Date: 20101210
  Transmission Date: 20110831
  Serious: No
  Sender: FDA-Public Use
  Company Number: US-BAYER-2011-004964

PATIENT
  Sex: Female

DRUGS (2)
  1. ALEVE (CAPLET) [Suspect]
     Indication: NASOPHARYNGITIS
  2. ALBUTEROL [Concomitant]

REACTIONS (2)
  - NO ADVERSE EVENT [None]
  - DRUG DOSE OMISSION [None]
